FAERS Safety Report 21117666 (Version 4)
Quarter: 2022Q3

REPORT INFORMATION
  Report Type: Spontaneous
  Country: US (occurrence: US)
  Receive Date: 20220722
  Receipt Date: 20220820
  Transmission Date: 20221026
  Serious: No
  Sender: FDA-Public Use
  Company Number: US-JNJFOC-20220722542

PATIENT
  Sex: Female

DRUGS (1)
  1. TREMFYA [Suspect]
     Active Substance: GUSELKUMAB
     Indication: Product used for unknown indication
     Route: 058

REACTIONS (7)
  - Product dose omission issue [Unknown]
  - Arthritis [Unknown]
  - Product complaint [Unknown]
  - Drug ineffective [Unknown]
  - Accidental exposure to product [Unknown]
  - Product use complaint [Unknown]
  - Viral infection [Unknown]
